FAERS Safety Report 5326839-6 (Version None)
Quarter: 2007Q2

REPORT INFORMATION
  Report Type: 
  Country: None (occurrence: None)
  Receive Date: 20070504
  Receipt Date: 20070424
  Transmission Date: 20071010
  Serious: Yes (Other)
  Sender: FDA-Public Use
  Company Number: B0468795A

PATIENT
  Age: 23 Year
  Sex: Female

DRUGS (1)
  1. ALBENDAZOLE (FORMULATION UNKNOWN) (ALBENDAZOLE) (GENERIC) [Suspect]
     Indication: PARASITE STOOL TEST POSITIVE
     Dosage: 400 MG / SINGLE DOSE / UNKNOWN

REACTIONS (12)
  - CONVULSION [None]
  - DISORIENTATION [None]
  - HEADACHE [None]
  - HYPERHIDROSIS [None]
  - HYPOAESTHESIA FACIAL [None]
  - MALAISE [None]
  - MUSCULAR WEAKNESS [None]
  - NEUROCYSTICERCOSIS [None]
  - PARTIAL SEIZURES [None]
  - PYREXIA [None]
  - TONIC CLONIC MOVEMENTS [None]
  - VOMITING [None]
